FAERS Safety Report 11139576 (Version 2)
Quarter: 2015Q2

REPORT INFORMATION
  Report Type: Spontaneous
  Country: US (occurrence: US)
  Receive Date: 20150527
  Receipt Date: 20150529
  Transmission Date: 20150821
  Serious: Yes (Death)
  Sender: FDA-Public Use
  Company Number: US-BAYER-2015-246037

PATIENT
  Age: 44 Year
  Sex: Male

DRUGS (8)
  1. PAROXETINE [Suspect]
     Active Substance: PAROXETINE\PAROXETINE HYDROCHLORIDE
  2. QUETIAPINE [Suspect]
     Active Substance: QUETIAPINE
  3. ACETAMINOPHEN. [Concomitant]
     Active Substance: ACETAMINOPHEN
  4. IBUPROFEN [IBUPROFEN] [Concomitant]
     Active Substance: IBUPROFEN
  5. HYDROCODONE [HYDROCODONE] [Suspect]
     Active Substance: HYDROCODONE
  6. TRAZODONE [Suspect]
     Active Substance: TRAZODONE HYDROCHLORIDE
  7. DIPHENHYDRAMINE HYDROCHLORIDE. [Suspect]
     Active Substance: DIPHENHYDRAMINE HYDROCHLORIDE
  8. GABAPENTIN. [Suspect]
     Active Substance: GABAPENTIN

REACTIONS (2)
  - Toxicity to various agents [Fatal]
  - Labelled drug-drug interaction medication error [None]
